FAERS Safety Report 6927690-3 (Version None)
Quarter: 2010Q3

REPORT INFORMATION
  Report Type: 
  Country: None (occurrence: None)
  Receive Date: 20100817
  Receipt Date: 20100714
  Transmission Date: 20110219
  Serious: No
  Sender: FDA-Public Use
  Company Number: A0872583A

PATIENT
  Sex: Male

DRUGS (1)
  1. VOTRIENT [Suspect]
     Indication: PRODUCT USED FOR UNKNOWN INDICATION
     Dosage: 200MG FOUR TIMES PER DAY
     Route: 048
     Dates: start: 20100613

REACTIONS (5)
  - COUGH [None]
  - DIARRHOEA [None]
  - LOWER RESPIRATORY TRACT INFECTION [None]
  - NAUSEA [None]
  - RETCHING [None]
